FAERS Safety Report 5973197-X (Version None)
Quarter: 2008Q4

REPORT INFORMATION
  Report Type: 
  Country: None (occurrence: None)
  Receive Date: 20081201
  Receipt Date: 20081119
  Transmission Date: 20090506
  Serious: Yes (Other)
  Sender: FDA-Public Use
  Company Number: JP-ELI_LILLY_AND_COMPANY-JP200811004669

PATIENT
  Age: 64 Year
  Sex: Female

DRUGS (2)
  1. GEMZAR [Suspect]
     Indication: TRANSITIONAL CELL CANCER OF THE RENAL PELVIS AND URETER
     Dosage: 1000 MG/M2, OTHER
     Route: 042
     Dates: start: 20050506, end: 20050620
  2. CARBOPLATIN [Concomitant]
     Indication: TRANSITIONAL CELL CANCER OF THE RENAL PELVIS AND URETER
     Dosage: UNK, OTHER
     Route: 042
     Dates: start: 20050506, end: 20050613

REACTIONS (1)
  - GASTRIC ULCER HAEMORRHAGE [None]
